FAERS Safety Report 7000287-5 (Version None)
Quarter: 2010Q3

REPORT INFORMATION
  Report Type: 
  Country: None (occurrence: None)
  Receive Date: 20100920
  Receipt Date: 20091103
  Transmission Date: 20110219
  Serious: No
  Sender: FDA-Public Use
  Company Number: US-ASTRAZENECA-2009SE24453

PATIENT
  Sex: Female

DRUGS (2)
  1. SEROQUEL [Suspect]
     Route: 048
  2. CYMBALTA [Concomitant]

REACTIONS (3)
  - DEPRESSION [None]
  - PANIC ATTACK [None]
  - RESTLESSNESS [None]
